FAERS Safety Report 14613893 (Version 1)
Quarter: 2018Q1

REPORT INFORMATION
  Report Type: Spontaneous
  Country: US (occurrence: US)
  Receive Date: 20180308
  Receipt Date: 20180308
  Transmission Date: 20180509
  Serious: No
  Sender: FDA-Public Use
  Company Number: US-TEVA-2018-US-864831

PATIENT
  Age: 62 Year
  Sex: Male

DRUGS (2)
  1. METOPROLOL SUCCINATE ER [Suspect]
     Active Substance: METOPROLOL SUCCINATE
     Indication: HEART RATE IRREGULAR
     Dosage: 50 MILLIGRAM DAILY;
     Route: 065
     Dates: start: 201708
  2. METOPROLOL SUCCINATE ER [Suspect]
     Active Substance: METOPROLOL SUCCINATE
     Dosage: 50MG AND 25MG TABLETS TWICE A DAY TO  HALF IN THE MORNING AND HALF IN THE EVENING TO EQUAL A DOSE OF
     Route: 065
     Dates: start: 20180217

REACTIONS (3)
  - Heart rate increased [Unknown]
  - Chest discomfort [Unknown]
  - Wrong technique in product usage process [Unknown]

NARRATIVE: CASE EVENT DATE: 201708
